FAERS Safety Report 7486413-2 (Version None)
Quarter: 2011Q2

REPORT INFORMATION
  Report Type: 
  Country: None (occurrence: None)
  Receive Date: 20110517
  Receipt Date: 20110513
  Transmission Date: 20111010
  Serious: No
  Sender: FDA-Public Use
  Company Number: US-B.I. PHARMACEUTICALS,INC./RIDGEFIELD-2011-BP-13169BP

PATIENT
  Age: 79 Year
  Sex: Female

DRUGS (1)
  1. PRADAXA [Suspect]
     Indication: ATRIAL FIBRILLATION
     Dosage: 300 MG

REACTIONS (5)
  - HAEMORRHOIDAL HAEMORRHAGE [None]
  - DIZZINESS [None]
  - HEADACHE [None]
  - FATIGUE [None]
  - FLATULENCE [None]
